FAERS Safety Report 13294341 (Version 1)
Quarter: 2017Q1

REPORT INFORMATION
  Report Type: Spontaneous
  Country: JP (occurrence: JP)
  Receive Date: 20170303
  Receipt Date: 20170303
  Transmission Date: 20170428
  Serious: Yes (Life-Threatening, Hospitalization, Other)
  Sender: FDA-Public Use
  Company Number: JP-ELI_LILLY_AND_COMPANY-JP201703001319

PATIENT
  Age: 58 Year
  Sex: Male

DRUGS (2)
  1. ERBITUX [Suspect]
     Active Substance: CETUXIMAB
     Dosage: 250 MG/M2, UNKNOWN
     Route: 042
     Dates: start: 201610, end: 20161201
  2. ERBITUX [Suspect]
     Active Substance: CETUXIMAB
     Indication: OROPHARYNGEAL CANCER
     Dosage: 400 MG/M2, UNKNOWN
     Route: 042
     Dates: start: 20161020, end: 20161020

REACTIONS (5)
  - Toxic shock syndrome [Recovered/Resolved with Sequelae]
  - Bacteraemia [Recovering/Resolving]
  - Bone marrow failure [Recovering/Resolving]
  - Swelling [Recovering/Resolving]
  - Extremity necrosis [Unknown]

NARRATIVE: CASE EVENT DATE: 2016
